FAERS Safety Report 11468397 (Version 2)
Quarter: 2015Q3

REPORT INFORMATION
  Report Type: Spontaneous
  Country: US (occurrence: US)
  Receive Date: 20150903
  Receipt Date: 20150903
  Transmission Date: 20151125
  Serious: No
  Sender: FDA-Public Use
  Company Number: US-ELI_LILLY_AND_COMPANY-US201108003166

PATIENT
  Sex: Male
  Weight: 81.63 kg

DRUGS (6)
  1. ROBAXIN [Concomitant]
     Active Substance: METHOCARBAMOL
  2. PERCOCET [Concomitant]
     Active Substance: ACETAMINOPHEN\OXYCODONE HYDROCHLORIDE
  3. NEURONTIN                               /USA/ [Concomitant]
  4. BACLOFEN. [Concomitant]
     Active Substance: BACLOFEN
  5. CYMBALTA [Suspect]
     Active Substance: DULOXETINE HYDROCHLORIDE
     Indication: NEURALGIA
     Dosage: 30 MG, QD
     Route: 048
     Dates: start: 201107
  6. METHOTREXATE                       /00113801/ [Concomitant]
     Dosage: UNK, PRN

REACTIONS (4)
  - Off label use [Recovered/Resolved]
  - VIth nerve paralysis [Unknown]
  - Nausea [Unknown]
  - Diplopia [Recovered/Resolved]
